FAERS Safety Report 20541959 (Version 1)
Quarter: 2022Q1

REPORT INFORMATION
  Report Type: Spontaneous
  Country: PL (occurrence: PL)
  Receive Date: 20220302
  Receipt Date: 20220302
  Transmission Date: 20220423
  Serious: Yes (Death)
  Sender: FDA-Public Use
  Company Number: PL-JNJFOC-20211208772

PATIENT
  Age: 79 Year
  Sex: Male

DRUGS (1)
  1. TREMFYA [Suspect]
     Active Substance: GUSELKUMAB
     Indication: Psoriasis
     Dosage: FREQUENCY-  MONTHS
     Route: 059
     Dates: start: 20211022

REACTIONS (3)
  - COVID-19 [Fatal]
  - Off label use [Unknown]
  - Product use issue [Unknown]
